FAERS Safety Report 11735381 (Version 1)
Quarter: 2015Q4

REPORT INFORMATION
  Report Type: Spontaneous
  Country: US (occurrence: US)
  Receive Date: 20151113
  Receipt Date: 20151113
  Transmission Date: 20160304
  Serious: Yes (Hospitalization)
  Sender: FDA-Public Use
  Company Number: US-MYLANLABS-2015M1038798

PATIENT

DRUGS (6)
  1. IMMUNE GLOBULIN [Suspect]
     Active Substance: HUMAN IMMUNOGLOBULIN G
     Indication: PRODUCT USED FOR UNKNOWN INDICATION
     Route: 042
  2. PIPERACILLIN AND TAZOBACTAM [Concomitant]
     Active Substance: PIPERACILLIN SODIUM\TAZOBACTAM SODIUM
     Dosage: 14 DAY COURSE
     Route: 042
  3. VANCOMYCIN [Suspect]
     Active Substance: VANCOMYCIN
     Indication: PRODUCT USED FOR UNKNOWN INDICATION
     Dosage: 14 DAY COURSE
     Route: 042
  4. DASATINIB [Suspect]
     Active Substance: DASATINIB
     Indication: CHRONIC MYELOID LEUKAEMIA
     Dosage: 100MG/DAY
     Route: 065
  5. CEFUROXIME. [Concomitant]
     Active Substance: CEFUROXIME
     Route: 065
  6. LEVOFLOXACIN. [Concomitant]
     Active Substance: LEVOFLOXACIN
     Dosage: 14 DAY COURSE
     Route: 042

REACTIONS (7)
  - Acute kidney injury [Recovered/Resolved]
  - Atypical pneumonia [Recovered/Resolved]
  - Pneumonia [Recovered/Resolved]
  - Tubulointerstitial nephritis [Recovered/Resolved]
  - Immunosuppression [Recovered/Resolved]
  - Bronchitis [Recovered/Resolved]
  - Hypersensitivity [Unknown]
